FAERS Safety Report 8094521-0 (Version None)
Quarter: 2012Q1

REPORT INFORMATION
  Report Type: 
  Country: None (occurrence: None)
  Receive Date: 20120131
  Receipt Date: 20120117
  Transmission Date: 20120608
  Serious: Yes (Other)
  Sender: FDA-Public Use
  Company Number: BR-NOVOPROD-341291

PATIENT
  Age: 54 Year
  Sex: Female
  Weight: 77.9 kg

DRUGS (4)
  1. LIRAGLUTIDE FLEXPEN [Suspect]
     Indication: OBESITY
     Dosage: 3 MG, UNK
     Route: 058
     Dates: start: 20110816, end: 20111208
  2. ACETAMINOPHEN [Concomitant]
     Dosage: 200 MG, QD
     Dates: start: 20110401
  3. CARISOPRODOL [Concomitant]
     Dosage: 100 MG, QD
     Dates: start: 20110401
  4. FLUOXETINE [Concomitant]
     Dosage: 20 MG, QD
     Dates: start: 20110401

REACTIONS (1)
  - HEPATITIS ACUTE [None]
